FAERS Safety Report 15813040 (Version 2)
Quarter: 2019Q1

REPORT INFORMATION
  Report Type: Spontaneous
  Country: HR (occurrence: HR)
  Receive Date: 20190111
  Receipt Date: 20190122
  Transmission Date: 20190417
  Serious: Yes (Hospitalization)
  Sender: FDA-Public Use
  Company Number: HR-GLAXOSMITHKLINE-HR2019002976

PATIENT
  Sex: Female

DRUGS (14)
  1. ELICEA [Suspect]
     Active Substance: ESCITALOPRAM OXALATE
     Indication: MIGRAINE
     Dosage: UNK
     Route: 065
  2. KNAVON [Suspect]
     Active Substance: KETOPROFEN
     Indication: MIGRAINE
     Dosage: UNK
     Route: 065
  3. PROPRANOLOL [Suspect]
     Active Substance: PROPRANOLOL HYDROCHLORIDE
     Indication: MIGRAINE PROPHYLAXIS
     Dosage: 180 MG, UNK
     Route: 065
  4. NORMABEL [Suspect]
     Active Substance: DIAZEPAM
     Indication: MIGRAINE
     Dosage: UNK
     Route: 065
  5. TOPIRAMATE. [Suspect]
     Active Substance: TOPIRAMATE
     Indication: MIGRAINE
     Dosage: UNK
     Route: 065
  6. ERENUMAB [Concomitant]
     Active Substance: ERENUMAB
     Indication: PRODUCT USED FOR UNKNOWN INDICATION
     Dosage: UNK
     Route: 065
  7. BOTOX [Suspect]
     Active Substance: ONABOTULINUMTOXINA
     Indication: MIGRAINE
     Dosage: UNK UNK, SINGLE
     Route: 030
  8. HELEX [Suspect]
     Active Substance: ALPRAZOLAM
     Indication: MIGRAINE PROPHYLAXIS
     Dosage: UNK
     Route: 065
  9. PROPYPHENAZONE + CAFFEINE [Suspect]
     Active Substance: CAFFEINE\PROPYPHENAZONE
     Indication: MIGRAINE
     Dosage: UNK
     Route: 065
  10. PROPRANOLOL [Suspect]
     Active Substance: PROPRANOLOL HYDROCHLORIDE
     Dosage: 120 MG, UNK
     Route: 065
  11. AMYZOL [Suspect]
     Active Substance: AMITRIPTYLINE
     Indication: MIGRAINE PROPHYLAXIS
     Dosage: UNK
     Route: 065
  12. IMIGRAN [Suspect]
     Active Substance: SUMATRIPTAN SUCCINATE
     Indication: MIGRAINE
     Dosage: UNK
     Route: 065
  13. ESCITALOPRAM OXALATE. [Suspect]
     Active Substance: ESCITALOPRAM OXALATE
     Indication: MIGRAINE PROPHYLAXIS
     Dosage: UNK
     Route: 065
  14. KETONAL (KETOPROFEN) [Suspect]
     Active Substance: KETOPROFEN
     Indication: MIGRAINE
     Dosage: UNK
     Route: 065

REACTIONS (3)
  - Drug ineffective [Unknown]
  - Product use in unapproved indication [Unknown]
  - Drug intolerance [Unknown]
